FAERS Safety Report 4725977-6 (Version None)
Quarter: 2005Q3

REPORT INFORMATION
  Report Type: 
  Country: None (occurrence: None)
  Receive Date: 20050727
  Receipt Date: 20050719
  Transmission Date: 20060218
  Serious: Yes (Disabling)
  Sender: FDA-Public Use
  Company Number: JP-GLAXOSMITHKLINE-B0388288A

PATIENT
  Age: 78 Year
  Sex: Female

DRUGS (6)
  1. VALTREX [Suspect]
     Indication: HERPES ZOSTER
     Dosage: 1000MG PER DAY
     Route: 048
     Dates: start: 20050715, end: 20050717
  2. NORVASC [Concomitant]
     Route: 048
  3. CALTAN [Concomitant]
     Route: 048
  4. RENIVACE [Concomitant]
     Route: 048
  5. ASPIRIN [Concomitant]
     Route: 048
  6. PURSENNID [Concomitant]
     Route: 048

REACTIONS (1)
  - NERVOUS SYSTEM DISORDER [None]
